FAERS Safety Report 5924684-1 (Version None)
Quarter: 2008Q4

REPORT INFORMATION
  Report Type: 
  Country: None (occurrence: None)
  Receive Date: 20081015
  Receipt Date: 20080929
  Transmission Date: 20090506
  Serious: Yes (Other)
  Sender: FDA-Public Use
  Company Number: 1000001307

PATIENT
  Age: 62 Year
  Sex: Female

DRUGS (2)
  1. ESCITALOPRAM [Suspect]
     Dosage: 10 MG (10 MG, 1 IN 1 D)
  2. PALIPERIDONE [Suspect]
     Dosage: 6 MG ( 6 MG, 1 IN 1 D)`

REACTIONS (10)
  - AFFECTIVE DISORDER [None]
  - AGITATION [None]
  - AKATHISIA [None]
  - CHOREOATHETOSIS [None]
  - DRUG INTERACTION [None]
  - HYPOMANIA [None]
  - MUSCLE RIGIDITY [None]
  - MYOCLONUS [None]
  - NERVOUSNESS [None]
  - PSYCHOTIC DISORDER [None]
